FAERS Safety Report 25318859 (Version 1)
Quarter: 2025Q2

REPORT INFORMATION
  Report Type: Spontaneous
  Country: GB (occurrence: GB)
  Receive Date: 20250515
  Receipt Date: 20250515
  Transmission Date: 20250716
  Serious: Yes (Other)
  Sender: RANBAXY
  Company Number: GB-MHRA-MED-202505021158510210-HPTMG

PATIENT
  Age: 65 Year
  Sex: Female
  Weight: 20 kg

DRUGS (3)
  1. LORATADINE [Suspect]
     Active Substance: LORATADINE
     Indication: Adverse drug reaction
     Route: 065
     Dates: start: 2023, end: 20250502
  2. RAMIPRIL [Concomitant]
     Active Substance: RAMIPRIL
     Indication: Hypotension
     Route: 065
  3. OMEPRAZOLE [Concomitant]
     Active Substance: OMEPRAZOLE
     Indication: Gastrooesophageal reflux disease
     Route: 065

REACTIONS (2)
  - Medication error [Unknown]
  - Dry eye [Recovering/Resolving]
